FAERS Safety Report 20105489 (Version 2)
Quarter: 2022Q2

REPORT INFORMATION
  Report Type: Spontaneous
  Country: JP (occurrence: JP)
  Receive Date: 20211124
  Receipt Date: 20220621
  Transmission Date: 20220721
  Serious: Yes (Death, Other)
  Sender: FDA-Public Use
  Company Number: JP-TAKEDA-2021TJP120538

PATIENT
  Age: 57 Year
  Sex: Male
  Weight: 53 kg

DRUGS (5)
  1. CABOMETYX [Suspect]
     Active Substance: CABOZANTINIB S-MALATE
     Indication: Clear cell renal cell carcinoma
     Dosage: 60 MG, QD
     Route: 048
     Dates: start: 20211014
  2. NIVOLUMAB [Suspect]
     Active Substance: NIVOLUMAB
     Indication: Product used for unknown indication
     Dosage: UNK
     Route: 065
     Dates: start: 20181113, end: 20200625
  3. NIVOLUMAB [Suspect]
     Active Substance: NIVOLUMAB
     Dosage: UNK
     Route: 065
     Dates: start: 20210218
  4. TRAMADOL [Concomitant]
     Active Substance: TRAMADOL
     Indication: Cancer pain
     Dosage: 25 MG, TID
     Route: 048
     Dates: start: 20211022
  5. FERROUS SULFATE [Concomitant]
     Active Substance: FERROUS SULFATE
     Indication: Anaemia
     Dosage: 1 {DF}
     Route: 048
     Dates: start: 20210610

REACTIONS (1)
  - Clear cell renal cell carcinoma [Fatal]

NARRATIVE: CASE EVENT DATE: 20211029
